FAERS Safety Report 10029493 (Version 2)
Quarter: 2014Q2

REPORT INFORMATION
  Report Type: Report from Study
  Country: KR (occurrence: KR)
  Receive Date: 20140322
  Receipt Date: 20140415
  Transmission Date: 20141212
  Serious: Yes (Hospitalization)
  Sender: FDA-Public Use
  Company Number: KR-009507513-1403KOR009374

PATIENT
  Age: 61 Year
  Sex: Male
  Weight: 68.7 kg

DRUGS (18)
  1. VORINOSTAT [Suspect]
     Indication: MANTLE CELL LYMPHOMA
     Dosage: 200 MG, QD ; CYCLE 2
     Route: 048
     Dates: start: 20140218, end: 20140227
  2. VORINOSTAT [Suspect]
     Dosage: 200 MG, QD: CYCLE 1
     Route: 048
     Dates: start: 20140122
  3. FLUDARABINE [Suspect]
     Indication: MANTLE CELL LYMPHOMA
     Dosage: 46 MG, QD ; CYCLE 2
     Route: 042
     Dates: start: 20140218, end: 20140220
  4. FLUDARABINE [Suspect]
     Dosage: 46 MG, QD ; CYCLE 1
     Route: 042
     Dates: start: 20140122
  5. MITOXANTRONE [Suspect]
     Indication: MANTLE CELL LYMPHOMA
     Dosage: 18 MG, QD ; CYCLE 2
     Route: 042
     Dates: start: 20140218, end: 20140218
  6. MITOXANTRONE [Suspect]
     Dosage: 18 MG, QD ; CYCLE 1
     Route: 042
     Dates: start: 20140122
  7. DEXAMETHASONE [Suspect]
     Indication: MANTLE CELL LYMPHOMA
     Dosage: 20 MG, QD
     Route: 042
     Dates: start: 20140218, end: 20140220
  8. DEXAMETHASONE [Suspect]
     Dosage: 20 MG, QD
     Route: 042
     Dates: start: 20140122
  9. DEXAMETHASONE [Suspect]
     Indication: MANTLE CELL LYMPHOMA
     Dosage: TOTAL DAILY DOSE: 20MG, BID
     Route: 048
     Dates: start: 20140221, end: 20140222
  10. DEXAMETHASONE [Suspect]
     Dosage: 20 MG, BID
     Route: 048
     Dates: start: 20140122
  11. LEVOTHYROXINE SODIUM [Concomitant]
     Indication: HYPOTHYROIDISM
     Dosage: DAILY DOSE: 125 MICROGRAM
     Dates: start: 20140212
  12. PREGABALIN [Concomitant]
     Indication: PROPHYLAXIS
     Dosage: DAILY DOSE: 150MG
     Dates: start: 20140212
  13. ATORVASTATIN [Concomitant]
     Indication: HYPERLIPIDAEMIA
     Dosage: DAILY DOSE: 5MG
     Dates: start: 20140212
  14. FENOFIBRATE [Concomitant]
     Indication: HYPERLIPIDAEMIA
     Dosage: DAILY DOSE: 160MG
     Dates: start: 20140212
  15. METFORMIN [Concomitant]
     Indication: DIABETES MELLITUS
     Dosage: DAILY DOSE: 1700MG
     Dates: start: 20140212
  16. ASPIRIN [Concomitant]
     Indication: THROMBOSIS PROPHYLAXIS
     Dosage: TOTAL DAILY DOSE: 100MG
     Dates: start: 20140212
  17. HUMULIN NPH [Concomitant]
     Indication: DIABETES MELLITUS
     Dosage: UNK
     Dates: start: 20140212
  18. GLIMEPIRIDE [Concomitant]
     Indication: DIABETES MELLITUS
     Dosage: TOTAL DAILY DOSE: 2MG
     Dates: start: 20140228

REACTIONS (1)
  - Interstitial lung disease [Recovering/Resolving]
